FAERS Safety Report 6642296-1 (Version None)
Quarter: 2010Q1

REPORT INFORMATION
  Report Type: 
  Country: None (occurrence: None)
  Receive Date: 20100319
  Receipt Date: 20100309
  Transmission Date: 20100710
  Serious: Yes (Other)
  Sender: FDA-Public Use
  Company Number: FR-ROCHE-676511

PATIENT
  Sex: Male
  Weight: 40 kg

DRUGS (5)
  1. XELODA [Suspect]
     Indication: PANCREATIC CARCINOMA METASTATIC
     Dosage: FOR 14 DAYS ON A CYCLE OF 28 DAYS
     Route: 048
     Dates: start: 20080721, end: 20091222
  2. ORACILLINE [Concomitant]
  3. CREON [Concomitant]
  4. PLAVIX [Concomitant]
  5. DELURSAN [Concomitant]

REACTIONS (5)
  - MELANODERMIA [None]
  - OPTIC ATROPHY [None]
  - OPTIC NEURITIS [None]
  - VISUAL ACUITY REDUCED [None]
  - VISUAL EVOKED POTENTIALS ABNORMAL [None]
